FAERS Safety Report 12207375 (Version 2)
Quarter: 2016Q1

REPORT INFORMATION
  Report Type: Spontaneous
  Country: DE (occurrence: DE)
  Receive Date: 20160324
  Receipt Date: 20160330
  Transmission Date: 20160526
  Serious: Yes (Hospitalization, Other)
  Sender: FDA-Public Use
  Company Number: DE-GLAXOSMITHKLINE-DE2016GSK040190

PATIENT
  Sex: Male

DRUGS (1)
  1. IMIGRAN INJECT [Suspect]
     Active Substance: SUMATRIPTAN SUCCINATE
     Indication: MIGRAINE
     Dosage: 0.5 ML, UNK
     Route: 058
     Dates: start: 2012

REACTIONS (1)
  - Sepsis [Recovered/Resolved]
